FAERS Safety Report 6025472-0 (Version None)
Quarter: 2008Q4

REPORT INFORMATION
  Report Type: 
  Country: None (occurrence: None)
  Receive Date: 20081231
  Receipt Date: 20081223
  Transmission Date: 20090506
  Serious: Yes (Death)
  Sender: FDA-Public Use
  Company Number: US-PFIZER INC-2008158891

PATIENT
  Sex: Male
  Weight: 83.447 kg

DRUGS (14)
  1. BLINDED *PLACEBO [Suspect]
     Indication: OSTEOARTHRITIS
     Dosage: BID/TID
     Route: 048
     Dates: start: 20080303, end: 20081220
  2. BLINDED CELECOXIB [Suspect]
     Indication: OSTEOARTHRITIS
     Dosage: BID/TID
     Route: 048
     Dates: start: 20080303, end: 20081220
  3. IBUPROFEN TABLETS [Suspect]
     Indication: OSTEOARTHRITIS
     Dosage: BID/TID
     Route: 048
     Dates: start: 20080303, end: 20081220
  4. NAPROXEN [Suspect]
     Indication: OSTEOARTHRITIS
     Dosage: BID/TID
     Route: 048
     Dates: start: 20080303, end: 20081220
  5. BLINDED *PLACEBO [Suspect]
     Indication: RHEUMATOID ARTHRITIS
  6. BLINDED CELECOXIB [Suspect]
     Indication: RHEUMATOID ARTHRITIS
  7. IBUPROFEN TABLETS [Suspect]
     Indication: RHEUMATOID ARTHRITIS
  8. NAPROXEN [Suspect]
     Indication: RHEUMATOID ARTHRITIS
  9. ACETYLSALICYLIC ACID [Concomitant]
     Dosage: 81 MG, 1X/DAY
     Route: 048
     Dates: start: 20040615, end: 20081220
  10. CRESTOR [Concomitant]
     Dosage: 10 MG, 1X/DAY
     Route: 048
     Dates: start: 20040615, end: 20081220
  11. NITROGLYCERIN [Concomitant]
     Dosage: 0.4 MG, AS NEEDED
     Route: 048
     Dates: start: 20020615, end: 20081220
  12. TOPROL-XL [Concomitant]
     Dosage: 25 MG, 1X/DAY
     Route: 048
     Dates: start: 20020615, end: 20081220
  13. TRAMADOL [Concomitant]
     Dosage: 50 MG, 2X/DAY
     Route: 048
     Dates: start: 20060615, end: 20081220
  14. VITAMINS [Concomitant]
     Dosage: DAILY
     Route: 048
     Dates: start: 20040615, end: 20081220

REACTIONS (1)
  - DEATH [None]
